FAERS Safety Report 17233272 (Version 1)
Quarter: 2020Q1

REPORT INFORMATION
  Report Type: Spontaneous
  Country: GB (occurrence: GB)
  Receive Date: 20200104
  Receipt Date: 20200104
  Transmission Date: 20200409
  Serious: Yes (Life-Threatening)
  Sender: FDA-Public Use
  Company Number: GB-AUROBINDO-AUR-APL-2019-109434

PATIENT
  Age: 31 Year
  Sex: Female
  Weight: 44 kg

DRUGS (1)
  1. PARACETAMOL TABLET [Suspect]
     Active Substance: ACETAMINOPHEN
     Indication: PRODUCT USED FOR UNKNOWN INDICATION
     Dosage: 500 MILLIGRAM
     Route: 065
     Dates: start: 20191211

REACTIONS (1)
  - Eye swelling [Recovered/Resolved]

NARRATIVE: CASE EVENT DATE: 20191211
